FAERS Safety Report 5346313-0 (Version None)
Quarter: 2007Q2

REPORT INFORMATION
  Report Type: 
  Country: None (occurrence: None)
  Receive Date: 20070420
  Receipt Date: 20061205
  Transmission Date: 20071010
  Serious: Yes (Death)
  Sender: FDA-Public Use
  Company Number: 06P-163-0353755-00

PATIENT
  Sex: Male

DRUGS (1)
  1. DEPAKOTE [Suspect]

REACTIONS (1)
  - PANCREATITIS [None]
